FAERS Safety Report 12015470 (Version 1)
Quarter: 2016Q1

REPORT INFORMATION
  Report Type: Spontaneous
  Country: US (occurrence: US)
  Receive Date: 20160205
  Receipt Date: 20160205
  Transmission Date: 20160526
  Serious: No
  Sender: FDA-Public Use
  Company Number: US-AMGEN-USASP2015038820

PATIENT

DRUGS (4)
  1. NEULASTA [Suspect]
     Active Substance: PEGFILGRASTIM
     Indication: PRODUCT USED FOR UNKNOWN INDICATION
     Dosage: UNK
     Route: 065
  2. HERCEPTIN [Suspect]
     Active Substance: TRASTUZUMAB
     Indication: INVASIVE DUCTAL BREAST CARCINOMA
     Dosage: UNK
     Route: 065
     Dates: start: 20140623
  3. PARAPLATIN [Concomitant]
     Active Substance: CARBOPLATIN
     Indication: INVASIVE DUCTAL BREAST CARCINOMA
     Dosage: UNK
     Dates: start: 20140623
  4. TAXOTERE [Concomitant]
     Active Substance: DOCETAXEL
     Indication: INVASIVE DUCTAL BREAST CARCINOMA
     Dosage: UNK
     Dates: start: 20140623

REACTIONS (19)
  - Pain [Unknown]
  - Onychalgia [Unknown]
  - Blister [Unknown]
  - Limb discomfort [Unknown]
  - Visual impairment [Unknown]
  - Fatigue [Unknown]
  - Anxiety [Unknown]
  - Skin disorder [Unknown]
  - Pain in extremity [Unknown]
  - Bone pain [Unknown]
  - Hyperchlorhydria [Unknown]
  - Constipation [Unknown]
  - Rhinorrhoea [Unknown]
  - Diarrhoea [Unknown]
  - Musculoskeletal stiffness [Unknown]
  - Activities of daily living impaired [Unknown]
  - Hypersensitivity [Unknown]
  - Lacrimation increased [Unknown]
  - Oral disorder [Unknown]
